FAERS Safety Report 7463769-8 (Version None)
Quarter: 2011Q2

REPORT INFORMATION
  Report Type: 
  Country: None (occurrence: None)
  Receive Date: 20110506
  Receipt Date: 20110426
  Transmission Date: 20111010
  Serious: Yes (Death, Hospitalization, Other)
  Sender: FDA-Public Use
  Company Number: GR-AMGEN-KDL415486

PATIENT
  Age: 67 Year
  Sex: Male

DRUGS (1)
  1. VECTIBIX [Suspect]
     Indication: COLORECTAL CANCER
     Dosage: 6 MG/KG, Q2WK
     Route: 041
     Dates: start: 20080701

REACTIONS (4)
  - NEOPLASM MALIGNANT [None]
  - DERMATITIS ACNEIFORM [None]
  - RENAL FAILURE [None]
  - DIARRHOEA [None]
